FAERS Safety Report 5150401-1 (Version None)
Quarter: 2006Q4

REPORT INFORMATION
  Report Type: 
  Country: None (occurrence: None)
  Receive Date: 20061108
  Receipt Date: 20061024
  Transmission Date: 20070319
  Serious: Yes (Other)
  Sender: FDA-Public Use
  Company Number: 2006131200

PATIENT
  Age: 51 Year
  Sex: Female

DRUGS (5)
  1. PREDNISOLONE [Suspect]
  2. VINCRISTINA (VINCRISTINE SULFATE) [Suspect]
  3. CYCLOPHOSPHAMIDE [Suspect]
  4. RITUXIMAB (RITUXIMAB) [Suspect]
  5. PIRARUBICIN (PIRARUBICIN) [Suspect]

REACTIONS (3)
  - ACUTE MYELOID LEUKAEMIA [None]
  - CHROMOSOME ANALYSIS ABNORMAL [None]
  - MYELODYSPLASTIC SYNDROME [None]
